FAERS Safety Report 5528264-1 (Version None)
Quarter: 2007Q4

REPORT INFORMATION
  Report Type: 
  Country: None (occurrence: None)
  Receive Date: 20071128
  Receipt Date: 20071116
  Transmission Date: 20080405
  Serious: Yes (Disabling)
  Sender: FDA-Public Use
  Company Number: GB-PFIZER INC-2007094125

PATIENT
  Sex: Female
  Weight: 48 kg

DRUGS (2)
  1. CHAMPIX [Suspect]
     Route: 048
  2. NITRAZEPAM [Concomitant]
     Route: 048

REACTIONS (3)
  - FATIGUE [None]
  - HYPERSOMNIA [None]
  - SOMNOLENCE [None]
